APPROVED DRUG PRODUCT: CARBIDOPA, LEVODOPA AND ENTACAPONE
Active Ingredient: CARBIDOPA; ENTACAPONE; LEVODOPA
Strength: 37.5MG;200MG;150MG
Dosage Form/Route: TABLET;ORAL
Application: A203424 | Product #005
Applicant: PHARMOBEDIENT CONSULTING LLC
Approved: Aug 13, 2020 | RLD: No | RS: No | Type: DISCN